FAERS Safety Report 14584818 (Version 3)
Quarter: 2018Q1

REPORT INFORMATION
  Report Type: Spontaneous
  Country: PT (occurrence: PT)
  Receive Date: 20180301
  Receipt Date: 20180321
  Transmission Date: 20180509
  Serious: Yes (Other)
  Sender: FDA-Public Use
  Company Number: PT-ABBVIE-18K-130-2273693-00

PATIENT
  Age: 28 Year
  Sex: Male

DRUGS (1)
  1. HUMIRA [Suspect]
     Active Substance: ADALIMUMAB
     Indication: COLITIS ULCERATIVE
     Route: 058
     Dates: start: 2013

REACTIONS (5)
  - Skin ulcer [Recovering/Resolving]
  - Nasal mucosal erosion [Recovering/Resolving]
  - Skin erosion [Recovering/Resolving]
  - Seborrhoea [Not Recovered/Not Resolved]
  - Auditory meatus external erosion [Recovering/Resolving]
